FAERS Safety Report 18566388 (Version 1)
Quarter: 2020Q4

REPORT INFORMATION
  Report Type: Spontaneous
  Country: HR (occurrence: HR)
  Receive Date: 20201201
  Receipt Date: 20201201
  Transmission Date: 20210114
  Serious: Yes (Other)
  Sender: FDA-Public Use
  Company Number: HR-MYLANLABS-2020M1097448

PATIENT
  Age: 24 Year
  Sex: Male
  Weight: 82 kg

DRUGS (1)
  1. HULIO [Suspect]
     Active Substance: ADALIMUMAB-FKJP
     Indication: COLITIS ULCERATIVE
     Dosage: 40 MILLIGRAM, Q2W(40 MG SC/2WEEKS)
     Route: 058
     Dates: start: 201912, end: 202003

REACTIONS (2)
  - Colitis ulcerative [Recovered/Resolved]
  - Therapy non-responder [Recovered/Resolved]

NARRATIVE: CASE EVENT DATE: 202003
